FAERS Safety Report 8221017-5 (Version None)
Quarter: 2012Q1

REPORT INFORMATION
  Report Type: 
  Country: None (occurrence: None)
  Receive Date: 20120320
  Receipt Date: 20120315
  Transmission Date: 20120608
  Serious: Yes (Hospitalization, Other)
  Sender: FDA-Public Use
  Company Number: US-PFIZER INC-2012069602

PATIENT
  Sex: Male

DRUGS (1)
  1. CHANTIX [Suspect]
     Dosage: UNK
     Dates: start: 20071201

REACTIONS (8)
  - DELUSION [None]
  - DEPRESSION [None]
  - ABNORMAL BEHAVIOUR [None]
  - MEMORY IMPAIRMENT [None]
  - DELIRIUM [None]
  - DIZZINESS [None]
  - ANXIETY [None]
  - DEMENTIA [None]
